FAERS Safety Report 4916129-5 (Version None)
Quarter: 2006Q1

REPORT INFORMATION
  Report Type: 
  Country: None (occurrence: None)
  Receive Date: 20060217
  Receipt Date: 20050930
  Transmission Date: 20060701
  Serious: Yes (Death, Hospitalization, Other)
  Sender: FDA-Public Use
  Company Number: PR-MERCK-0510USA00850

PATIENT
  Age: 55 Year
  Sex: Male

DRUGS (1)
  1. VIOXX [Suspect]
     Indication: BACK PAIN
     Route: 048
     Dates: start: 20020101

REACTIONS (12)
  - CARDIAC DISORDER [None]
  - CARDIAC FAILURE [None]
  - CARDIOPULMONARY FAILURE [None]
  - CEREBROVASCULAR ACCIDENT [None]
  - CHEST PAIN [None]
  - DEPRESSION [None]
  - HEPATIC FAILURE [None]
  - MYOCARDIAL INFARCTION [None]
  - PNEUMONIA BACTERIAL [None]
  - RESPIRATORY DISORDER [None]
  - RESPIRATORY FAILURE [None]
  - VENOUS INSUFFICIENCY [None]
